FAERS Safety Report 16493855 (Version 1)
Quarter: 2019Q2

REPORT INFORMATION
  Report Type: Spontaneous
  Country: US (occurrence: US)
  Receive Date: 20190628
  Receipt Date: 20190628
  Transmission Date: 20190711
  Serious: No
  Sender: FDA-Public Use
  Company Number: US-INDIVIOR-LIMITED_INDV-118409-2019

PATIENT
  Sex: Male

DRUGS (1)
  1. SUBLOCADE [Suspect]
     Active Substance: BUPRENORPHINE
     Indication: DRUG DEPENDENCE
     Dosage: 300 MILLIGRAM, QMO (FIRST INJECTION)
     Route: 065
     Dates: start: 20190215

REACTIONS (5)
  - Injection site erythema [Unknown]
  - Product tampering [Unknown]
  - Injection site pain [Recovered/Resolved]
  - Injection site infection [Unknown]
  - Injection site injury [Unknown]

NARRATIVE: CASE EVENT DATE: 201902
